FAERS Safety Report 7707767-5 (Version None)
Quarter: 2011Q3

REPORT INFORMATION
  Report Type: 
  Country: None (occurrence: None)
  Receive Date: 20110824
  Receipt Date: 20110815
  Transmission Date: 20111222
  Serious: Yes (Other)
  Sender: FDA-Public Use
  Company Number: US-ASTRAZENECA-2010SE54991

PATIENT
  Age: 79 Year
  Sex: Female
  Weight: 86.6 kg

DRUGS (22)
  1. XANAX [Concomitant]
     Dosage: PRN
     Route: 048
  2. CARDIZEM CD [Concomitant]
     Indication: HYPERTENSION
     Route: 048
  3. ASPIRIN [Concomitant]
  4. MYTUSSIN [Concomitant]
  5. IMODIUM [Concomitant]
  6. AMBIEN [Concomitant]
     Route: 048
  7. FASLODEX [Suspect]
     Indication: BREAST CANCER METASTATIC
     Route: 030
     Dates: start: 20100506, end: 20110517
  8. CALCIUM WITH VITAMIN D [Concomitant]
     Dosage: DAILY 2000, 1000 MG
     Route: 048
  9. NOVOLIN R [Concomitant]
     Indication: DIABETES MELLITUS
     Route: 058
  10. PROTONIX [Concomitant]
     Indication: GASTROOESOPHAGEAL REFLUX DISEASE
     Route: 048
  11. ALPRAZOLAM [Concomitant]
  12. ALPRAZOLAM [Concomitant]
  13. CYCLOR + SALVE [Concomitant]
  14. ARIMIDEX [Suspect]
     Indication: BREAST CANCER
     Route: 048
     Dates: start: 20091201, end: 20100501
  15. XALATAN [Concomitant]
     Indication: GLAUCOMA
     Route: 050
  16. AMBIEN [Concomitant]
     Indication: SLEEP DISORDER
     Route: 048
  17. BISOPROLOL FUMARATE [Concomitant]
     Indication: HYPERTENSION
     Route: 048
  18. TRUSOPT [Concomitant]
     Indication: GLAUCOMA
     Dosage: TID
     Route: 050
  19. FLONASE [Concomitant]
  20. LANTUS [Concomitant]
     Indication: DIABETES MELLITUS
     Route: 058
  21. PHENERGAN EXPECTORANT W/ CODEINE [Concomitant]
  22. MAGNESIUM [Concomitant]
     Indication: MUSCLE SPASMS

REACTIONS (19)
  - OROPHARYNGEAL PAIN [None]
  - LABORATORY TEST ABNORMAL [None]
  - INCORRECT DOSE ADMINISTERED [None]
  - TUMOUR MARKER INCREASED [None]
  - HOT FLUSH [None]
  - BONE CANCER METASTATIC [None]
  - INJECTION SITE NODULE [None]
  - INJECTION SITE PAIN [None]
  - NAUSEA [None]
  - IMMOBILE [None]
  - BREAST CANCER METASTATIC [None]
  - PAIN [None]
  - THERAPEUTIC RESPONSE UNEXPECTED [None]
  - INJECTION SITE DISCOMFORT [None]
  - HYPERGLYCAEMIA [None]
  - METASTASES TO BONE [None]
  - COUGH [None]
  - DIZZINESS [None]
  - FATIGUE [None]
